FAERS Safety Report 8898691 (Version 2)
Quarter: 2012Q4

REPORT INFORMATION
  Report Type: 
  Country: JP (occurrence: JP)
  Receive Date: 20121109
  Receipt Date: 20121205
  Transmission Date: 20130627
  Serious: Yes (Other)
  Sender: FDA-Public Use
  Company Number: JP-UCBSA-065880

PATIENT
  Age: 30 Year
  Sex: Female

DRUGS (7)
  1. E KEPPRA [Suspect]
     Indication: CONVULSION
     Route: 048
     Dates: start: 20120803, end: 20120819
  2. CARBAMAZEPINE [Concomitant]
     Indication: CONVULSION
     Dosage: DAILY DOSE: 399 MG
     Route: 048
  3. RIVOTRIL [Concomitant]
     Indication: CONVULSION
     Dosage: DAILY DOSE:1.5 MG
     Route: 048
  4. EXCEGRAN [Concomitant]
     Indication: CONVULSION
     Dosage: DAILY DOSE: 139.8 MG
     Route: 048
  5. MYSTAN [Concomitant]
     Indication: CONVULSION
     Dosage: DAILY DOSE:12 MG
     Route: 048
  6. C-CYSTEN [Concomitant]
     Indication: CHRONIC RESPIRATORY FAILURE
     Dosage: DAILY DOSE:1.98 GRAM
     Route: 048
  7. MAGMITT [Concomitant]
     Indication: CONSTIPATION
     Dosage: DAILY DOSE: 330 MG
     Route: 048
     Dates: start: 20120329

REACTIONS (2)
  - Increased upper airway secretion [Recovered/Resolved]
  - Somnolence [Recovered/Resolved]
